FAERS Safety Report 11107842 (Version 3)
Quarter: 2015Q4

REPORT INFORMATION
  Report Type: Report from Study
  Country: CZ (occurrence: CZ)
  Receive Date: 20150512
  Receipt Date: 20151118
  Transmission Date: 20160304
  Serious: Yes (Other)
  Sender: FDA-Public Use
  Company Number: PHHY2015CZ054178

PATIENT
  Age: 67 Year
  Sex: Female

DRUGS (4)
  1. AFINITOR [Suspect]
     Active Substance: EVEROLIMUS
     Dosage: 10 MG, ONCE PER TWO DAYS
     Route: 048
     Dates: start: 20150216, end: 20150222
  2. AFINITOR [Suspect]
     Active Substance: EVEROLIMUS
     Indication: BREAST CANCER
     Dosage: 10 MG, QD
     Route: 048
     Dates: start: 20150116, end: 20150206
  3. ESSENTIALE FORTE [Concomitant]
     Indication: PRODUCT USED FOR UNKNOWN INDICATION
     Route: 065
  4. ERCEFURYL [Concomitant]
     Indication: PRODUCT USED FOR UNKNOWN INDICATION
     Route: 065

REACTIONS (9)
  - Osteitis [Recovering/Resolving]
  - Gastrointestinal disorder [Recovering/Resolving]
  - Malignant neoplasm progression [Unknown]
  - Tooth disorder [Recovering/Resolving]
  - Seizure [Recovering/Resolving]
  - Diarrhoea [Recovering/Resolving]
  - Jaw disorder [Recovering/Resolving]
  - Pain [Recovering/Resolving]
  - Stomatitis [Recovering/Resolving]

NARRATIVE: CASE EVENT DATE: 20150228
